FAERS Safety Report 4730568-7 (Version None)
Quarter: 2005Q3

REPORT INFORMATION
  Report Type: 
  Country: None (occurrence: None)
  Receive Date: 20050725
  Receipt Date: 20050217
  Transmission Date: 20060218
  Serious: No
  Sender: FDA-Public Use
  Company Number: USA050291157

PATIENT
  Age: 27 Year
  Sex: Male
  Weight: 65 kg

DRUGS (1)
  1. STRATTERA [Suspect]
     Indication: ATTENTION DEFICIT/HYPERACTIVITY DISORDER
     Dosage: 80 MG DAY
     Dates: start: 20030101

REACTIONS (2)
  - BLOOD GLUCOSE DECREASED [None]
  - FEELING ABNORMAL [None]
